FAERS Safety Report 25984785 (Version 1)
Quarter: 2025Q4

REPORT INFORMATION
  Report Type: Spontaneous
  Country: US (occurrence: US)
  Receive Date: 20251031
  Receipt Date: 20251031
  Transmission Date: 20260118
  Serious: No
  Sender: MERCK SHARP & DOHME LLC
  Company Number: US-009507513-2337639

PATIENT
  Age: 6 Month
  Sex: Male

DRUGS (19)
  1. POSACONAZOLE [Interacting]
     Active Substance: POSACONAZOLE
     Indication: Antifungal prophylaxis
     Route: 042
  2. POSACONAZOLE [Interacting]
     Active Substance: POSACONAZOLE
     Indication: Antifungal prophylaxis
     Route: 042
  3. POSACONAZOLE [Interacting]
     Active Substance: POSACONAZOLE
     Indication: Antifungal prophylaxis
     Route: 042
  4. POSACONAZOLE [Interacting]
     Active Substance: POSACONAZOLE
     Indication: Antifungal prophylaxis
     Route: 042
  5. POSACONAZOLE [Interacting]
     Active Substance: POSACONAZOLE
     Indication: Antifungal prophylaxis
     Dosage: TIME INTERVAL: 0.33333333 DAYS
     Route: 050
  6. POSACONAZOLE [Interacting]
     Active Substance: POSACONAZOLE
     Indication: Antifungal prophylaxis
     Dosage: TIME INTERVAL: 0.33333333 DAYS
     Route: 050
  7. PROGRAF [Interacting]
     Active Substance: TACROLIMUS
     Indication: Immunosuppressant drug therapy
  8. PROGRAF [Interacting]
     Active Substance: TACROLIMUS
     Indication: Immunosuppressant drug therapy
  9. PROGRAF [Interacting]
     Active Substance: TACROLIMUS
     Indication: Immunosuppressant drug therapy
  10. PROGRAF [Interacting]
     Active Substance: TACROLIMUS
     Indication: Immunosuppressant drug therapy
  11. PROGRAF [Interacting]
     Active Substance: TACROLIMUS
     Indication: Immunosuppressant drug therapy
  12. PROGRAF [Interacting]
     Active Substance: TACROLIMUS
     Indication: Immunosuppressant drug therapy
  13. PROGRAF [Interacting]
     Active Substance: TACROLIMUS
     Indication: Immunosuppressant drug therapy
  14. PROGRAF [Interacting]
     Active Substance: TACROLIMUS
     Indication: Immunosuppressant drug therapy
  15. JAKAFI [Interacting]
     Active Substance: RUXOLITINIB
     Indication: Acute graft versus host disease in skin
     Dosage: TIME INTERVAL: 0.33333333 DAYS
  16. JAKAFI [Interacting]
     Active Substance: RUXOLITINIB
     Indication: Acute graft versus host disease in skin
  17. CAMPATH [Concomitant]
     Active Substance: ALEMTUZUMAB
     Indication: Acute graft versus host disease in skin
     Route: 058
  18. METHYLPREDNISOLONE [Concomitant]
     Active Substance: METHYLPREDNISOLONE
     Indication: Immunosuppression
  19. FLUCONAZOLE [Concomitant]
     Active Substance: FLUCONAZOLE
     Indication: Antifungal prophylaxis

REACTIONS (2)
  - Labelled drug-drug interaction issue [Unknown]
  - Product administered to patient of inappropriate age [Unknown]
